FAERS Safety Report 5583257-3 (Version None)
Quarter: 2007Q4

REPORT INFORMATION
  Report Type: 
  Country: None (occurrence: None)
  Receive Date: 20071130
  Receipt Date: 20061201
  Transmission Date: 20080405
  Serious: Yes (Disabling, Other)
  Sender: FDA-Public Use
  Company Number: WAES 0612USA00222

PATIENT
  Age: 64 Year
  Sex: Female
  Weight: 50.8029 kg

DRUGS (5)
  1. FOSAMAX [Suspect]
     Indication: OSTEOPENIA
     Dosage: 70 MG/WKY/PO
     Route: 048
     Dates: end: 20061121
  2. COZAAR [Concomitant]
  3. VYTORIN [Concomitant]
  4. ATENOLOL [Concomitant]
  5. METFORMIN HCL [Concomitant]

REACTIONS (1)
  - OSTEOMYELITIS [None]
